FAERS Safety Report 9929041 (Version 2)
Quarter: 2014Q2

REPORT INFORMATION
  Report Type: Spontaneous
  Country: US (occurrence: US)
  Receive Date: 20140227
  Receipt Date: 20140417
  Transmission Date: 20141212
  Serious: Yes (Other)
  Sender: FDA-Public Use
  Company Number: US-FRI-1000054586

PATIENT
  Age: 52 Year
  Sex: Male

DRUGS (2)
  1. LINZESS [Suspect]
     Indication: CONSTIPATION
     Dosage: 145MCG
     Route: 048
     Dates: start: 20140221, end: 201402
  2. LINZESS [Suspect]
     Dosage: 145MCG AS NEEDED
     Route: 048
     Dates: start: 201402

REACTIONS (2)
  - Hypotension [Recovered/Resolved]
  - Dizziness [Recovered/Resolved]
